FAERS Safety Report 10166690 (Version 1)
Quarter: 2014Q2

REPORT INFORMATION
  Report Type: Spontaneous
  Country: US (occurrence: None)
  Receive Date: 20140509
  Receipt Date: 20140509
  Transmission Date: 20141212
  Serious: No
  Sender: FDA-Public Use
  Company Number: None

PATIENT
  Age: 39 Year
  Sex: Female

DRUGS (1)
  1. REMICADE 100 MG VIAL [Suspect]
     Indication: COLITIS ULCERATIVE
     Dosage: INFUSE 300 MG INTRAVENOUSLY EVERY 8 WEEKS
     Route: 042
     Dates: start: 20110715

REACTIONS (1)
  - Atrial fibrillation [None]
